FAERS Safety Report 5545637-1 (Version None)
Quarter: 2007Q4

REPORT INFORMATION
  Report Type: 
  Country: None (occurrence: None)
  Receive Date: 20071211
  Receipt Date: 20071206
  Transmission Date: 20080405
  Serious: Yes (Life-Threatening)
  Sender: FDA-Public Use
  Company Number: JP-AVENTIS-200613499JP

PATIENT
  Age: 55 Year
  Sex: Female
  Weight: 40 kg

DRUGS (6)
  1. ARAVA [Suspect]
     Indication: RHEUMATOID ARTHRITIS
     Route: 048
     Dates: start: 20061021, end: 20061102
  2. PREDNISOLONE [Concomitant]
     Route: 048
  3. LOXONIN                            /00890701/ [Concomitant]
     Route: 048
  4. BONALON [Concomitant]
     Route: 048
  5. RHEUMATREX                         /00113801/ [Concomitant]
     Dosage: DOSE: 8MG/WEEK
     Route: 048
     Dates: end: 20061020
  6. FOLIAMIN [Concomitant]
     Dosage: DOSE: 5MG/WEEK
     Route: 048
     Dates: end: 20061020

REACTIONS (11)
  - ABDOMINAL PAIN [None]
  - ALANINE AMINOTRANSFERASE INCREASED [None]
  - ASPARTATE AMINOTRANSFERASE INCREASED [None]
  - BLOOD LACTATE DEHYDROGENASE INCREASED [None]
  - DIARRHOEA [None]
  - GAMMA-GLUTAMYLTRANSFERASE INCREASED [None]
  - HYPERTENSION [None]
  - NAUSEA [None]
  - PRURITUS [None]
  - TOXIC EPIDERMAL NECROLYSIS [None]
  - VOMITING [None]
